FAERS Safety Report 18943791 (Version 1)
Quarter: 2021Q1

REPORT INFORMATION
  Report Type: Spontaneous
  Country: US (occurrence: US)
  Receive Date: 20210225
  Receipt Date: 20210225
  Transmission Date: 20210420
  Serious: No
  Sender: FDA-Public Use
  Company Number: None

PATIENT
  Age: 54 Year
  Sex: Female
  Weight: 51.75 kg

DRUGS (4)
  1. NAPROXEN  500 MG TABLET [Suspect]
     Active Substance: NAPROXEN
     Indication: BURSITIS
     Dosage: ?          QUANTITY:1 TABLET(S);?
     Route: 048
     Dates: start: 20210211, end: 20210225
  2. MULTIVITAMIN [Concomitant]
     Active Substance: VITAMINS
  3. ARMOUR THYROID [Concomitant]
     Active Substance: THYROID, PORCINE
  4. CALCIUM CITRATE [Concomitant]
     Active Substance: CALCIUM CITRATE

REACTIONS (3)
  - Headache [None]
  - Vertigo [None]
  - Dizziness [None]

NARRATIVE: CASE EVENT DATE: 20210225
